FAERS Safety Report 8909879 (Version 3)
Quarter: 2012Q4

REPORT INFORMATION
  Report Type: 
  Country: CH (occurrence: CH)
  Receive Date: 20121115
  Receipt Date: 20121205
  Transmission Date: 20130627
  Serious: Yes (Other)
  Sender: FDA-Public Use
  Company Number: CH-PFIZER INC-2012284170

PATIENT
  Age: 10 Month
  Sex: Female
  Weight: 1.84 kg

DRUGS (7)
  1. PANTOZOL [Suspect]
     Dosage: 20 mg, 1x/day
     Route: 064
     Dates: start: 20120417, end: 20120525
  2. ZITHROMAX [Suspect]
     Dosage: 500 mg, 1x/day
     Route: 064
     Dates: start: 20120120, end: 20120124
  3. VERMOX [Suspect]
     Indication: ENTEROBIASIS
     Dosage: 100 mg, 2x/day
     Route: 064
     Dates: start: 20120305, end: 20120319
  4. UTROGESTAN [Suspect]
     Dosage: 400 mg, Daily
     Route: 064
     Dates: start: 2011, end: 20120110
  5. UTROGESTAN [Suspect]
     Dosage: 200 mg, 1x/day
  6. UTROGESTAN [Suspect]
     Dosage: 100 mg, 1x/day
     Dates: end: 20120525
  7. NIFEDIPINE [Suspect]
     Dosage: 30 mg, 2x/day
     Route: 064
     Dates: start: 20120320, end: 20120525

REACTIONS (3)
  - Maternal exposure timing unspecified [Recovered/Resolved]
  - Macrocephaly [Unknown]
  - Premature baby [Recovered/Resolved]
